FAERS Safety Report 10912863 (Version 1)
Quarter: 2015Q1

REPORT INFORMATION
  Report Type: Spontaneous
  Country: GB (occurrence: None)
  Receive Date: 20150310
  Receipt Date: 20150310
  Transmission Date: 20150721
  Serious: Yes (Disabling)
  Sender: FDA-Public Use
  Company Number: GB-DEXPHARM-20150152

PATIENT
  Age: 56 Year
  Sex: Female

DRUGS (1)
  1. OMEPRAZOLE. [Suspect]
     Active Substance: OMEPRAZOLE
     Indication: GASTROOESOPHAGEAL REFLUX DISEASE
     Route: 048
     Dates: start: 20150115, end: 20150212

REACTIONS (6)
  - Sleep disorder [None]
  - Neck pain [None]
  - Back pain [None]
  - Pain in extremity [None]
  - Arthralgia [None]
  - Activities of daily living impaired [None]

NARRATIVE: CASE EVENT DATE: 20150211
